FAERS Safety Report 9091458 (Version 1)
Quarter: 2013Q1

REPORT INFORMATION
  Report Type: Report from Study
  Country: US (occurrence: US)
  Receive Date: 20130201
  Receipt Date: 20130201
  Transmission Date: 20140127
  Serious: No
  Sender: FDA-Public Use
  Company Number: US-ABBOTT-13P-163-1030114-00

PATIENT
  Sex: Female
  Weight: 59.02 kg

DRUGS (9)
  1. HUMIRA [Suspect]
     Indication: CROHN^S DISEASE
     Dates: start: 201201
  2. ASACOL HD [Concomitant]
     Indication: CROHN^S DISEASE
  3. PREDNISONE [Concomitant]
     Indication: CROHN^S DISEASE
  4. NUVARING [Concomitant]
     Indication: CONTRACEPTION
  5. PROTONIX [Concomitant]
     Indication: GASTROOESOPHAGEAL REFLUX DISEASE
  6. ZANTAC [Concomitant]
     Indication: GASTROOESOPHAGEAL REFLUX DISEASE
  7. MULTIVITAMIN [Concomitant]
     Indication: SUPPLEMENTATION THERAPY
  8. PROBIOTICS NOS [Concomitant]
     Indication: ILL-DEFINED DISORDER
  9. VITAMIN D NOS [Concomitant]
     Indication: SUPPLEMENTATION THERAPY

REACTIONS (1)
  - Injection site erythema [Recovering/Resolving]
